FAERS Safety Report 20688397 (Version 1)
Quarter: 2022Q2

REPORT INFORMATION
  Report Type: Spontaneous
  Country: US (occurrence: US)
  Receive Date: 20220408
  Receipt Date: 20220408
  Transmission Date: 20220721
  Serious: Yes (Death, Other)
  Sender: FDA-Public Use
  Company Number: US-VELOXIS PHARMACEUTICALS-2022VELUS-000226

PATIENT
  Age: 18 Year
  Sex: Female

DRUGS (1)
  1. ENVARSUS XR [Suspect]
     Active Substance: TACROLIMUS
     Indication: Product used for unknown indication
     Dosage: 4 MILLIGRAM, BID FOR 30 DAYS
     Route: 065

REACTIONS (2)
  - Death [Fatal]
  - Off label use [Unknown]

NARRATIVE: CASE EVENT DATE: 20220324
